FAERS Safety Report 16446656 (Version 3)
Quarter: 2019Q3

REPORT INFORMATION
  Report Type: Report from Study
  Country: US (occurrence: US)
  Receive Date: 20190618
  Receipt Date: 20190702
  Transmission Date: 20191004
  Serious: Yes (Death, Hospitalization, Other)
  Sender: FDA-Public Use
  Company Number: PHHY2019US123152

PATIENT
  Age: 73 Year
  Sex: Female
  Weight: 97.1 kg

DRUGS (6)
  1. PIQRAY [Suspect]
     Active Substance: ALPELISIB
     Dosage: 300 MG, QD
     Route: 048
     Dates: start: 20190529
  2. PIQRAY [Suspect]
     Active Substance: ALPELISIB
     Dosage: 300 MG, QD
     Route: 048
     Dates: start: 20190612
  3. PIQRAY [Suspect]
     Active Substance: ALPELISIB
     Indication: BREAST CANCER METASTATIC
     Dosage: 350 MG, QD
     Route: 048
     Dates: start: 20190514
  4. PIQRAY [Suspect]
     Active Substance: ALPELISIB
     Dosage: 350 MG, QD
     Route: 048
     Dates: start: 20190521
  5. PIQRAY [Suspect]
     Active Substance: ALPELISIB
     Dosage: 300 MG, QD
     Route: 048
     Dates: start: 20190618
  6. LASIX [Concomitant]
     Active Substance: FUROSEMIDE
     Indication: PRODUCT USED FOR UNKNOWN INDICATION
     Route: 065

REACTIONS (15)
  - Confusional state [Recovered/Resolved]
  - Asthenia [Not Recovered/Not Resolved]
  - Mental status changes [Recovered/Resolved]
  - Neutrophil count increased [Unknown]
  - Hypercalcaemia [Recovered/Resolved]
  - Musculoskeletal chest pain [Unknown]
  - Aspartate aminotransferase increased [Unknown]
  - Acute kidney injury [Fatal]
  - Diarrhoea [Not Recovered/Not Resolved]
  - Cardiac failure congestive [Not Recovered/Not Resolved]
  - Hallucination [Unknown]
  - Proctalgia [Not Recovered/Not Resolved]
  - Bandaemia [Unknown]
  - Pleurisy [Unknown]
  - Fatigue [Not Recovered/Not Resolved]

NARRATIVE: CASE EVENT DATE: 20190521
